FAERS Safety Report 7360611-0 (Version None)
Quarter: 2011Q1

REPORT INFORMATION
  Report Type: 
  Country: None (occurrence: None)
  Receive Date: 20110315
  Receipt Date: 20110315
  Transmission Date: 20110831
  Serious: Yes (Other)
  Sender: FDA-Public Use
  Company Number: None

PATIENT
  Age: 6 Year
  Sex: Female
  Weight: 22.6799 kg

DRUGS (1)
  1. ALBUTEROL SULFATE [Suspect]
     Indication: WHEEZING
     Dosage: 1 VIAL IN NEBULIZER 3 TIMES A DAY INHAL
     Route: 055
     Dates: start: 20110216, end: 20110306

REACTIONS (2)
  - PAIN IN EXTREMITY [None]
  - CRYING [None]
